FAERS Safety Report 6141355-X (Version None)
Quarter: 2009Q2

REPORT INFORMATION
  Report Type: 
  Country: None (occurrence: None)
  Receive Date: 20090402
  Receipt Date: 20090323
  Transmission Date: 20091009
  Serious: Yes (Hospitalization, Other)
  Sender: FDA-Public Use
  Company Number: FI-ROCHE-624080

PATIENT
  Sex: Male
  Weight: 82 kg

DRUGS (6)
  1. XELODA [Suspect]
     Indication: COLORECTAL CANCER
     Route: 048
     Dates: start: 20090119, end: 20090222
  2. AVASTIN [Suspect]
     Indication: COLORECTAL CANCER
     Route: 042
     Dates: start: 20090119, end: 20090210
  3. CARDACE COMP [Concomitant]
     Indication: HYPERTENSION
     Dosage: DOSING AMOUNT : 2.5+12.5 MG SART DATE : 15 YEARS AGO
     Route: 048
  4. PRIMPERAN [Concomitant]
     Route: 048
  5. KYTRIL [Concomitant]
     Route: 048
  6. IRINOTECAN HCL [Concomitant]
     Route: 042
     Dates: start: 20090119, end: 20090210

REACTIONS (2)
  - METASTASIS [None]
  - PYREXIA [None]
